FAERS Safety Report 20523033 (Version 1)
Quarter: 2022Q1

REPORT INFORMATION
  Report Type: Spontaneous
  Country: CN (occurrence: CN)
  Receive Date: 20220227
  Receipt Date: 20220227
  Transmission Date: 20220423
  Serious: Yes (Hospitalization)
  Sender: FDA-Public Use
  Company Number: CN-NOVARTISPH-NVSC2022CN043838

PATIENT
  Age: 70 Year
  Sex: Female
  Weight: 47.5 kg

DRUGS (5)
  1. ACLASTA [Suspect]
     Active Substance: ZOLEDRONIC ACID
     Indication: Osteoporosis
     Dosage: 5 MG
     Route: 041
     Dates: start: 20220209, end: 20220209
  2. SODIUM CHLORIDE [Concomitant]
     Active Substance: SODIUM CHLORIDE
     Indication: Product used for unknown indication
     Dosage: 500 ML, 2-3 HR
     Route: 042
  3. SODIUM CHLORIDE [Concomitant]
     Active Substance: SODIUM CHLORIDE
     Dosage: 250 ML, AFTER USING THE DRUG
     Route: 065
     Dates: start: 20220209
  4. CELECOXIB [Concomitant]
     Active Substance: CELECOXIB
     Indication: Product used for unknown indication
     Dosage: 0.2 G, BEFORE TAKING THE DRUG
     Route: 048
     Dates: start: 20220209
  5. CELECOXIB [Concomitant]
     Active Substance: CELECOXIB
     Dosage: 0.2 G, UNKNOWN
     Route: 048
     Dates: start: 20220210

REACTIONS (3)
  - Hyperpyrexia [Recovering/Resolving]
  - Muscle spasms [Recovering/Resolving]
  - Trismus [Recovering/Resolving]

NARRATIVE: CASE EVENT DATE: 20220210
